FAERS Safety Report 22010514 (Version 3)
Quarter: 2024Q1

REPORT INFORMATION
  Report Type: Spontaneous
  Country: US (occurrence: US)
  Receive Date: 20230220
  Receipt Date: 20240102
  Transmission Date: 20240409
  Serious: No
  Sender: FDA-Public Use
  Company Number: US-APOTEX-2023AP002691

PATIENT
  Sex: Female

DRUGS (1)
  1. BUTORPHANOL TARTRATE [Suspect]
     Active Substance: BUTORPHANOL TARTRATE
     Indication: Migraine
     Dosage: UNK, THERAPY DURATION: ON AND OFF THIS PRODUCT FOR 15 TO 20 YEARS
     Route: 045

REACTIONS (4)
  - Burning sensation mucosal [Unknown]
  - Product dose omission issue [Unknown]
  - Product taste abnormal [Unknown]
  - Drug ineffective [Unknown]
